FAERS Safety Report 7353656-8 (Version None)
Quarter: 2011Q1

REPORT INFORMATION
  Report Type: 
  Country: None (occurrence: None)
  Receive Date: 20110303
  Receipt Date: 20101122
  Transmission Date: 20110831
  Serious: Yes (Hospitalization)
  Sender: FDA-Public Use
  Company Number: US-005548

PATIENT
  Age: 54 Year
  Sex: Female

DRUGS (3)
  1. ISOVUE-M (IOPAMIDOL) [Suspect]
  2. ISOVUE-M (IOPAMIDOL) [Suspect]
     Indication: BACK PAIN
     Dosage: 15ML ONCE INTRATHECAL
     Route: 037
     Dates: start: 20101117, end: 20101117
  3. ISOVUE-M (IOPAMIDOL) [Suspect]
     Indication: SPINAL MYELOGRAM
     Dosage: 15ML ONCE INTRATHECAL
     Route: 037
     Dates: start: 20101117, end: 20101117

REACTIONS (1)
  - HEADACHE [None]
